FAERS Safety Report 15424509 (Version 2)
Quarter: 2018Q4

REPORT INFORMATION
  Report Type: Spontaneous
  Country: NZ (occurrence: NZ)
  Receive Date: 20180925
  Receipt Date: 20181128
  Transmission Date: 20190204
  Serious: Yes (Other)
  Sender: FDA-Public Use
  Company Number: NZ-009507513-1809NZL010470

PATIENT
  Age: 77 Year
  Sex: Male

DRUGS (3)
  1. CILAZAPRIL [Suspect]
     Active Substance: CILAZAPRIL ANHYDROUS
     Indication: HYPERTENSION
     Dosage: 25 MILLIGRAM, QD, LONGTERM
     Route: 048
  2. PEMBROLIZUMAB. [Suspect]
     Active Substance: PEMBROLIZUMAB
     Indication: METASTATIC MALIGNANT MELANOMA
     Dosage: UNK, 8 CYCLES, 4-WEEKLY INFUSIONS
     Dates: start: 201707, end: 20171211
  3. PEMBROLIZUMAB. [Suspect]
     Active Substance: PEMBROLIZUMAB
     Dosage: UNK, CYCLE 9, 4-WEEKLY INFUSIONS
     Dates: start: 20180312, end: 201806

REACTIONS (8)
  - Acute kidney injury [Recovering/Resolving]
  - Primary hypothyroidism [Not Recovered/Not Resolved]
  - Fatigue [Recovering/Resolving]
  - Arthralgia [Unknown]
  - Tubulointerstitial nephritis [Recovering/Resolving]
  - Nausea [Unknown]
  - Rash [Recovering/Resolving]
  - Decreased appetite [Unknown]

NARRATIVE: CASE EVENT DATE: 201712
